FAERS Safety Report 7083725-1 (Version None)
Quarter: 2010Q4

REPORT INFORMATION
  Report Type: 
  Country: None (occurrence: None)
  Receive Date: 20101104
  Receipt Date: 20101025
  Transmission Date: 20110411
  Serious: Yes (Hospitalization)
  Sender: FDA-Public Use
  Company Number: MY-JNJFOC-20101007261

PATIENT
  Sex: Female
  Weight: 58.7 kg

DRUGS (19)
  1. GOLIMUMAB [Suspect]
     Route: 058
  2. GOLIMUMAB [Suspect]
     Indication: RHEUMATOID ARTHRITIS
     Route: 058
  3. PLACEBO [Suspect]
     Indication: RHEUMATOID ARTHRITIS
     Route: 048
  4. LEVOTHYROXINE SODIUM [Concomitant]
     Route: 048
  5. FOLIC ACID [Concomitant]
     Route: 048
  6. ASCORBIC ACID [Concomitant]
     Route: 048
  7. NATURAL TEARS [Concomitant]
     Route: 061
  8. ETORICOXIB [Concomitant]
     Route: 048
  9. ETORICOXIB [Concomitant]
     Route: 048
  10. DAKTARIN [Concomitant]
     Route: 061
  11. OMEPRAZOLE [Concomitant]
     Route: 048
  12. ANTI-FUNGAL [Concomitant]
     Route: 061
  13. CLOTRIMAZOLE [Concomitant]
     Route: 061
  14. AQUEOUS [Concomitant]
     Route: 061
  15. AQUEOUS [Concomitant]
     Route: 061
  16. SARNA [Concomitant]
     Route: 061
  17. PIRITON [Concomitant]
     Route: 048
  18. FUCICORT [Concomitant]
     Route: 061
  19. BETNOVATE [Concomitant]
     Route: 061

REACTIONS (1)
  - NECROTISING FASCIITIS [None]
